FAERS Safety Report 25764430 (Version 1)
Quarter: 2025Q3

REPORT INFORMATION
  Report Type: Spontaneous
  Country: US (occurrence: US)
  Receive Date: 20250905
  Receipt Date: 20250905
  Transmission Date: 20251020
  Serious: No
  Sender: DOMPE FARMACEUTICI
  Company Number: US-FARMAPROD-202502-0459

PATIENT
  Sex: Female

DRUGS (22)
  1. OXERVATE [Suspect]
     Active Substance: CENEGERMIN-BKBJ
     Indication: Neurotrophic keratopathy
     Route: 047
     Dates: start: 20250115
  2. CHONDROITIN SULFATE A\GLUCOSAMINE [Concomitant]
     Active Substance: CHONDROITIN SULFATE A\GLUCOSAMINE
  3. ZINC-15 [Concomitant]
  4. TYLENOL [Concomitant]
     Active Substance: ACETAMINOPHEN
  5. MAGNESIUM [Concomitant]
     Active Substance: MAGNESIUM
  6. LYSINE [Concomitant]
     Active Substance: LYSINE
  7. POTASSIUM [Concomitant]
     Active Substance: POTASSIUM
  8. DIETARY SUPPLEMENT [Concomitant]
     Active Substance: DIETARY SUPPLEMENT
  9. CRANBERRY [Concomitant]
     Active Substance: CRANBERRY
  10. VITAMIN B COMPLEX [Concomitant]
     Active Substance: CYANOCOBALAMIN\DEXPANTHENOL\NIACINAMIDE\PYRIDOXINE HYDROCHLORIDE\RIBOFLAVIN 5^-PHOSPHATE SODIUM\THIA
  11. MINERALS\VITAMINS [Concomitant]
     Active Substance: MINERALS\VITAMINS
  12. GARLIC [Concomitant]
     Active Substance: GARLIC
  13. CALCIUM [Concomitant]
     Active Substance: CALCIUM
  14. CINNAMON [Concomitant]
     Active Substance: CINNAMON
  15. GLUCOSAMINE-CHONDROITIN-MSM [Concomitant]
  16. RESTASIS [Concomitant]
     Active Substance: CYCLOSPORINE
  17. MONTELUKAST SODIUM [Concomitant]
     Active Substance: MONTELUKAST SODIUM
  18. GABAPENTIN [Concomitant]
     Active Substance: GABAPENTIN
  19. NITROFURANTOIN [Concomitant]
     Active Substance: NITROFURANTOIN
  20. ELIQUIS [Concomitant]
     Active Substance: APIXABAN
  21. DOFETILIDE [Concomitant]
     Active Substance: DOFETILIDE
  22. METOPROLOL TARTRATE [Concomitant]
     Active Substance: METOPROLOL TARTRATE

REACTIONS (1)
  - Eyelid pain [Unknown]
